FAERS Safety Report 9106108 (Version 1)
Quarter: 2013Q1

REPORT INFORMATION
  Report Type: Spontaneous
  Country: JP (occurrence: JP)
  Receive Date: 20130221
  Receipt Date: 20130221
  Transmission Date: 20140127
  Serious: Yes (Disabling, Other)
  Sender: FDA-Public Use
  Company Number: JP-PFIZER INC-2012300796

PATIENT
  Age: 10 Decade
  Sex: Female
  Weight: 51 kg

DRUGS (7)
  1. AZULFIDINE EN [Suspect]
     Indication: RHEUMATOID ARTHRITIS
     Dosage: 500 MG, 2X/DAY
     Route: 048
     Dates: end: 20121105
  2. AZULFIDINE EN [Suspect]
     Dosage: 250 MG, 2X/DAY
     Route: 048
     Dates: start: 20121120, end: 20121204
  3. LIPITOR [Concomitant]
     Dosage: 5 MG DAILY (EVENING)
     Route: 048
  4. OLMETEC [Concomitant]
     Dosage: 10 MG DAILY (MORNING)
     Route: 048
  5. DIGOXIN [Concomitant]
     Dosage: 0.1 MG DAILY
     Route: 048
  6. ALLOPURINOL [Concomitant]
     Dosage: 50 MG, 2X/DAY
     Route: 048
     Dates: start: 20121105
  7. FAMOTIDINE [Concomitant]
     Dosage: 20 MG DAILY (EVENING)
     Route: 048
     Dates: start: 20100210

REACTIONS (2)
  - Anaemia [Recovered/Resolved]
  - Loss of consciousness [Recovered/Resolved]
